FAERS Safety Report 8122980 (Version 2)
Quarter: 2012Q4

REPORT INFORMATION
  Report Type: 
  Country: US (occurrence: US)
  Receive Date: 20110906
  Receipt Date: 20120924
  Transmission Date: 20130627
  Serious: Yes (Hospitalization, Other)
  Sender: FDA-Public Use
  Company Number: US-US-EMD SERONO, INC.-7080256

PATIENT
  Age: 52 None
  Sex: Female

DRUGS (3)
  1. REBIF [Suspect]
     Indication: MULTIPLE SCLEROSIS
     Route: 058
     Dates: start: 20101018
  2. AZILECT [Concomitant]
     Indication: PARKINSON^S DISEASE
  3. LODOSYN [Concomitant]
     Indication: PARKINSON^S DISEASE

REACTIONS (2)
  - Thyroid neoplasm [Recovering/Resolving]
  - Pancreatitis [Recovered/Resolved]
